FAERS Safety Report 4304561-2 (Version None)
Quarter: 2004Q1

REPORT INFORMATION
  Report Type: 
  Country: None (occurrence: None)
  Receive Date: 20040226
  Receipt Date: 20030721
  Transmission Date: 20041129
  Serious: Yes (Other)
  Sender: FDA-Public Use
  Company Number: 200312253EU

PATIENT
  Age: 12 Year
  Sex: Male

DRUGS (5)
  1. ARAVA [Suspect]
     Indication: JUVENILE ARTHRITIS
     Route: 048
     Dates: start: 20030204, end: 20030730
  2. INDOMETHACIN [Concomitant]
     Route: 048
     Dates: start: 20020825
  3. OMEPRAZOLE [Concomitant]
     Route: 048
     Dates: start: 20020825
  4. PRIMPERAN INJ [Concomitant]
     Route: 048
     Dates: start: 20021105
  5. FOLIC ACID [Concomitant]
     Route: 048
     Dates: start: 20021008

REACTIONS (1)
  - ALANINE AMINOTRANSFERASE INCREASED [None]
